FAERS Safety Report 9866285 (Version 2)
Quarter: 2014Q1

REPORT INFORMATION
  Report Type: Spontaneous
  Country: US (occurrence: US)
  Receive Date: 20140203
  Receipt Date: 20140203
  Transmission Date: 20141002
  Serious: No
  Sender: FDA-Public Use
  Company Number: US-ALLERGAN-1318348US

PATIENT
  Age: 80 Year
  Sex: Female

DRUGS (8)
  1. RESTASIS [Suspect]
     Indication: DRY EYE
     Dosage: 2 GTT, BID
     Route: 047
     Dates: start: 20130201, end: 201310
  2. DESLORATADINE [Concomitant]
     Indication: HYPERSENSITIVITY
     Dosage: 1 PILL, QAM
     Route: 048
  3. NASONEX [Concomitant]
     Indication: HYPERSENSITIVITY
     Dosage: 2 SPRAYS, QHS
     Route: 045
  4. SIMVASTATIN [Concomitant]
     Indication: BLOOD CHOLESTEROL INCREASED
     Dosage: 40 MG, QPM
     Route: 048
  5. MVI CENTRUM PLUS [Concomitant]
     Indication: SUPPLEMENTATION THERAPY
     Dosage: UNK
  6. CALCIUM [Concomitant]
     Indication: SUPPLEMENTATION THERAPY
     Dosage: UNK
  7. SOOTHE LUBRICATING EYE DROPS [Concomitant]
     Indication: EYE LUBRICATION THERAPY
  8. SYSTANE [Concomitant]
     Indication: EYE LUBRICATION THERAPY

REACTIONS (3)
  - Dizziness postural [Recovered/Resolved]
  - Skin irritation [Unknown]
  - Vision blurred [Recovered/Resolved]
